FAERS Safety Report 9887641 (Version 2)
Quarter: 2014Q2

REPORT INFORMATION
  Report Type: Spontaneous
  Country: US (occurrence: US)
  Receive Date: 20140211
  Receipt Date: 20140520
  Transmission Date: 20141212
  Serious: Yes (Life-Threatening, Hospitalization, Disabling)
  Sender: FDA-Public Use
  Company Number: US-BAYER-2014-021214

PATIENT
  Age: 39 Year
  Sex: Female
  Weight: 61.22 kg

DRUGS (32)
  1. YAZ [Suspect]
  2. YASMIN [Suspect]
  3. BEYAZ [Suspect]
  4. SAFYRAL [Suspect]
  5. OCELLA [Suspect]
  6. GIANVI [Suspect]
  7. ZARAH [Suspect]
  8. CYCLOBENZAPRINE [Concomitant]
     Dosage: 10 MG, HS
     Route: 048
     Dates: start: 20111202, end: 20120124
  9. ADVIL [Concomitant]
     Indication: PAIN
     Dosage: 800 MG, EVERY 8 HOURS WITH FOOD AS NEEDED
     Route: 048
     Dates: start: 20111202, end: 20120124
  10. FENOFIBRATE [Concomitant]
     Indication: BLOOD TRIGLYCERIDES INCREASED
     Dosage: 54 MG, 2 DAILY WITH FOOD
     Route: 048
     Dates: start: 20111202
  11. TORADOL [Concomitant]
     Indication: MIGRAINE
     Dosage: 30 MG AND 60 MG
     Route: 030
     Dates: start: 20120117
  12. TORADOL [Concomitant]
     Indication: MIGRAINE
     Dosage: UNK
     Dates: start: 20120118
  13. TORADOL [Concomitant]
     Indication: MIGRAINE
     Dosage: UNK
     Dates: start: 20120125
  14. MELOXICAM [Concomitant]
     Indication: INFLAMMATION
     Dosage: 7.5-15 MG DAILY WITH FOOD AS NEEDED
     Route: 048
  15. MELOXICAM [Concomitant]
     Indication: PAIN
  16. LIDODERM [Concomitant]
     Dosage: 700 MG PER PATCH APPLY UP TO 3 PATCHES FOR UP TO 12 HOURS WITHIN A 24 HOUR PERIOD
     Route: 062
     Dates: start: 20120117, end: 20120124
  17. HYDROCODONE/ACETAMINOPHEN [Concomitant]
     Indication: HEADACHE
     Dosage: 5-500 MG 1 - 2 TABLET EVERY 6 HOURS AS NEEDED
     Route: 048
     Dates: start: 20120117, end: 20120124
  18. SIMVASTATIN [Concomitant]
     Indication: BLOOD CHOLESTEROL INCREASED
     Dosage: 10-20 MG EVERY EVENING
     Route: 048
     Dates: start: 20120117, end: 20120124
  19. SIMVASTATIN [Concomitant]
     Indication: BLOOD CHOLESTEROL INCREASED
     Dosage: UNK
     Dates: start: 20120307
  20. ONDANSETRON [Concomitant]
     Dosage: 4 MG, UNK
     Route: 030
     Dates: start: 20120118
  21. HYDROMORPHONE [Concomitant]
     Dosage: 1 MG, UNK
     Route: 030
     Dates: start: 20120118
  22. SUMATRIPTAN SUCCINATE [Concomitant]
     Indication: MIGRAINE
     Dosage: 50 - 100 MG, 1 TABLET AT ONSET
     Route: 048
     Dates: start: 20120121, end: 20120126
  23. SUMATRIPTAN SUCCINATE [Concomitant]
     Indication: MIGRAINE
     Dosage: UNK
     Dates: start: 20120208
  24. STADOL [Concomitant]
     Dosage: 2 MG, UNK
     Route: 030
     Dates: start: 20120122
  25. ELAVIL [Concomitant]
     Dosage: 20-50 MG DAILY AT BEDTIME
     Route: 048
     Dates: start: 20120125
  26. ELAVIL [Concomitant]
     Dosage: UNK
     Route: 048
     Dates: start: 20020201
  27. PREDNISONE [Concomitant]
     Dosage: 60 MG, TAPER OVER ONE WEEK
     Route: 048
  28. PHENERGAN [Concomitant]
     Indication: PROPHYLAXIS OF NAUSEA AND VOMITING
     Dosage: 25 MG, EVERY 6 HOURS AS NEEDED
     Route: 048
  29. VITAMIN B12 [Concomitant]
     Dosage: 500 ?G, DAILY
     Route: 048
     Dates: start: 20120307
  30. CEFPODOXIME PROXETIL [Concomitant]
     Indication: PHARYNGITIS
     Dosage: 20 MG, TID
     Route: 048
  31. CHERATUSSIN [CODEINE,GUAIFENESIN,PSEUDOEPHEDRINE] [Concomitant]
     Indication: COUGH
     Dosage: 1-2 TEASPOONFULS EVERY 4 HOURS AS NEEDED
     Route: 048
  32. TRIAMCINOLONE ACETONIDE [Concomitant]

REACTIONS (8)
  - Pulmonary embolism [Recovering/Resolving]
  - Injury [Recovering/Resolving]
  - General physical health deterioration [Recovering/Resolving]
  - Anxiety [None]
  - Anhedonia [None]
  - Emotional distress [None]
  - Pain [None]
  - Pain [Recovering/Resolving]
